FAERS Safety Report 4818280-7 (Version None)
Quarter: 2005Q4

REPORT INFORMATION
  Report Type: 
  Country: None (occurrence: None)
  Receive Date: 20051031
  Receipt Date: 20051013
  Transmission Date: 20060501
  Serious: Yes (Congenital Anomaly)
  Sender: FDA-Public Use
  Company Number: 8012861

PATIENT

DRUGS (3)
  1. KEPPRA [Suspect]
     Dosage: TRP
  2. TOPAMAX [Suspect]
     Indication: EPILEPSY
     Dosage: TRP
  3. LAMOTRIGINE [Suspect]
     Dosage: TRP

REACTIONS (2)
  - DRUG EXPOSURE DURING PREGNANCY [None]
  - PYLORIC STENOSIS [None]
